FAERS Safety Report 10444693 (Version 2)
Quarter: 2014Q3

REPORT INFORMATION
  Report Type: Spontaneous
  Country: US (occurrence: US)
  Receive Date: 20140910
  Receipt Date: 20140929
  Transmission Date: 20150326
  Serious: No
  Sender: FDA-Public Use
  Company Number: US-PFIZER INC-2014248863

PATIENT
  Age: 61 Year
  Sex: Male
  Weight: 55.78 kg

DRUGS (3)
  1. ZYVOX [Suspect]
     Active Substance: LINEZOLID
     Indication: LUNG INFECTION
     Dosage: 100 MG (6 TEASPOONS) BY MOUTH VIA FEEDING TUBE), 2X/DAY
     Route: 048
     Dates: start: 20140903
  2. KEPPRA [Concomitant]
     Active Substance: LEVETIRACETAM
     Indication: CONVULSION
     Dosage: 750 MG, 2X/DAY
  3. ONFI [Concomitant]
     Active Substance: CLOBAZAM
     Indication: MYOCLONUS
     Dosage: 5 MG, 2X/DAY

REACTIONS (3)
  - Eye movement disorder [Not Recovered/Not Resolved]
  - Fear [Not Recovered/Not Resolved]
  - Eye disorder [Not Recovered/Not Resolved]

NARRATIVE: CASE EVENT DATE: 20140904
